FAERS Safety Report 26199936 (Version 1)
Quarter: 2025Q4

REPORT INFORMATION
  Report Type: Spontaneous
  Country: US (occurrence: US)
  Receive Date: 20251225
  Receipt Date: 20251225
  Transmission Date: 20260118
  Serious: Yes (Other)
  Sender: BOEHRINGER INGELHEIM
  Company Number: US-BoehringerIngelheim-2025-BI-116415

PATIENT
  Age: 58 Year
  Sex: Male

DRUGS (7)
  1. AFATINIB [Suspect]
     Active Substance: AFATINIB
     Indication: Chordoma
     Dates: start: 202309
  2. AFATINIB [Suspect]
     Active Substance: AFATINIB
     Dates: start: 202311
  3. AFATINIB [Suspect]
     Active Substance: AFATINIB
  4. HEPARIN [Concomitant]
     Active Substance: HEPARIN SODIUM
     Indication: Transverse sinus thrombosis
  5. HEPARIN [Concomitant]
     Active Substance: HEPARIN SODIUM
     Indication: Pulmonary embolism
  6. APIXABAN [Concomitant]
     Active Substance: APIXABAN
     Indication: Transverse sinus thrombosis
  7. APIXABAN [Concomitant]
     Active Substance: APIXABAN
     Indication: Pulmonary embolism

REACTIONS (5)
  - Malignant neoplasm oligoprogression [Recovering/Resolving]
  - Hypertransaminasaemia [Recovered/Resolved]
  - Dermatitis acneiform [Unknown]
  - Diarrhoea [Unknown]
  - Intentional product use issue [Unknown]

NARRATIVE: CASE EVENT DATE: 20231101
